FAERS Safety Report 4654817-9 (Version None)
Quarter: 2005Q2

REPORT INFORMATION
  Report Type: 
  Country: None (occurrence: None)
  Receive Date: 20050505
  Receipt Date: 20050420
  Transmission Date: 20051028
  Serious: Yes (Death)
  Sender: FDA-Public Use
  Company Number: 05-04-0735

PATIENT
  Age: 64 Year
  Sex: Female

DRUGS (8)
  1. ALBUTEROL SULFATE [Suspect]
     Dosage: 5MG
  2. ATROVENT [Suspect]
     Indication: CHRONIC OBSTRUCTIVE PULMONARY DISEASE
     Dosage: 2ML
  3. PREDNISOLONE [Suspect]
     Dosage: 5 MG ORAL
     Route: 048
  4. AMOXICILLIN [Suspect]
  5. IBUPROFEN [Suspect]
     Dosage: 200MG TDS ORAL
     Route: 048
  6. VENTODISKS [Suspect]
     Dosage: 400MCG QDS
  7. SALMETEROL AND FLUTICASONE [Suspect]
     Dosage: 2 PUFFS BD INHALATION
     Route: 055
  8. PHYLLOCONTIN [Suspect]
     Dosage: 225MG BD

REACTIONS (2)
  - BRONCHOPNEUMONIA [None]
  - EMPHYSEMA [None]
